FAERS Safety Report 5227101-2 (Version None)
Quarter: 2007Q1

REPORT INFORMATION
  Report Type: 
  Country: None (occurrence: None)
  Receive Date: 20070201
  Receipt Date: 20070201
  Transmission Date: 20070707
  Serious: Yes (Hospitalization)
  Sender: FDA-Public Use
  Company Number: None

PATIENT
  Age: 74 Year
  Sex: Female

DRUGS (2)
  1. WARFARIN SODIUM [Suspect]
     Indication: PROTEIN S DEFICIENCY
     Dosage: 3MG QD PO
     Route: 048
     Dates: start: 20050221, end: 20061219
  2. WARFARIN SODIUM [Suspect]
     Indication: PULMONARY EMBOLISM
     Dosage: 3MG QD PO
     Route: 048
     Dates: start: 20050221, end: 20061219

REACTIONS (1)
  - INTERNATIONAL NORMALISED RATIO INCREASED [None]
